FAERS Safety Report 20135476 (Version 1)
Quarter: 2021Q4

REPORT INFORMATION
  Report Type: Spontaneous
  Country: US (occurrence: None)
  Receive Date: 20211130
  Receipt Date: 20211130
  Transmission Date: 20220303
  Serious: Yes (Hospitalization)
  Sender: FDA-Public Use
  Company Number: None

PATIENT
  Sex: Male

DRUGS (4)
  1. KESIMPTA [Suspect]
     Active Substance: OFATUMUMAB
     Indication: Constipation
     Dosage: FREQUENCY : MONTHLY;?
     Route: 058
     Dates: start: 20210624
  2. GABAPENTIN [Concomitant]
     Active Substance: GABAPENTIN
  3. ROPINIROLE [Concomitant]
     Active Substance: ROPINIROLE
  4. DIETARY SUPPLEMENT [Concomitant]
     Active Substance: DIETARY SUPPLEMENT

REACTIONS (1)
  - Gastric operation [None]
